FAERS Safety Report 6290636-8 (Version None)
Quarter: 2009Q3

REPORT INFORMATION
  Report Type: 
  Country: None (occurrence: None)
  Receive Date: 20090730
  Receipt Date: 20090717
  Transmission Date: 20100115
  Serious: No
  Sender: FDA-Public Use
  Company Number: PHHY2009JP24456

PATIENT
  Age: 7 Year
  Sex: Male
  Weight: 25.2 kg

DRUGS (2)
  1. TEGRETOL [Suspect]
     Indication: EPILEPSY
     Dosage: 0.4 G DAILY
     Route: 048
     Dates: start: 20090401
  2. CEFDINIR [Concomitant]
     Indication: PAROTID GLAND ENLARGEMENT
     Dosage: 2.2 G
     Route: 048
     Dates: start: 20090608, end: 20090614

REACTIONS (2)
  - PAROTID GLAND ENLARGEMENT [None]
  - PIGMENTATION DISORDER [None]
